FAERS Safety Report 8571674-9 (Version None)
Quarter: 2012Q3

REPORT INFORMATION
  Report Type: 
  Country: None (occurrence: None)
  Receive Date: 20120806
  Receipt Date: 20120725
  Transmission Date: 20120928
  Serious: Yes (Hospitalization)
  Sender: FDA-Public Use
  Company Number: US-JNJFOC-20120713213

PATIENT
  Sex: Female
  Weight: 61.24 kg

DRUGS (2)
  1. DURAGESIC-100 [Suspect]
     Indication: INTERVERTEBRAL DISC DEGENERATION
     Dosage: ONE 100 UG/HR PATCH + ONE 25 UG/HR PATCH
     Route: 062
     Dates: end: 20090101
  2. DURAGESIC-100 [Suspect]
     Dosage: ONE 100 UG/HR PATCH + ONE 12.5 UG/HR PATCH
     Route: 062
     Dates: end: 20090101

REACTIONS (5)
  - WRONG TECHNIQUE IN DRUG USAGE PROCESS [None]
  - PRODUCT QUALITY ISSUE [None]
  - FOOT FRACTURE [None]
  - DRUG DOSE OMISSION [None]
  - JOINT INJURY [None]
